FAERS Safety Report 8047154-6 (Version None)
Quarter: 2012Q1

REPORT INFORMATION
  Report Type: 
  Country: None (occurrence: None)
  Receive Date: 20120116
  Receipt Date: 20120110
  Transmission Date: 20120608
  Serious: Yes (Death)
  Sender: FDA-Public Use
  Company Number: FR-JNJFOC-20110908990

PATIENT
  Sex: Female
  Weight: 88 kg

DRUGS (6)
  1. LEPTICUR [Concomitant]
     Route: 048
  2. TERCIAN [Concomitant]
     Dosage: A HALF TABLET ON THE MORNING AND AT LUNCH AND ONE TABLE ON THE EVENING
     Route: 048
  3. XANAX [Concomitant]
     Route: 048
  4. RISPERDAL CONSTA [Suspect]
     Indication: PSYCHOTIC DISORDER
     Route: 030
  5. TRIMEPRAZINE TARTRATE [Concomitant]
     Route: 048
  6. RISPERIDONE [Concomitant]
     Indication: PSYCHOTIC DISORDER
     Route: 048

REACTIONS (1)
  - PULMONARY EMBOLISM [None]
